FAERS Safety Report 10005162 (Version 1)
Quarter: 2014Q1

REPORT INFORMATION
  Report Type: Spontaneous
  Country: US (occurrence: US)
  Receive Date: 20140312
  Receipt Date: 20140312
  Transmission Date: 20141002
  Serious: Yes (Other)
  Sender: FDA-Public Use
  Company Number: US-PFIZER INC-2014071388

PATIENT
  Age: 55 Year
  Sex: Female
  Weight: 99.77 kg

DRUGS (1)
  1. CELEBREX [Suspect]
     Indication: ARTHRITIS
     Dosage: 300 MG, 1X/DAY
     Dates: end: 2011

REACTIONS (1)
  - Arthropathy [Unknown]
